FAERS Safety Report 7189976-X (Version None)
Quarter: 2010Q4

REPORT INFORMATION
  Report Type: 
  Country: None (occurrence: None)
  Receive Date: 20101223
  Receipt Date: 20101211
  Transmission Date: 20110411
  Serious: Yes (Hospitalization, Other)
  Sender: FDA-Public Use
  Company Number: FR-PFIZER INC-2010048774

PATIENT
  Age: 41 Year
  Sex: Male

DRUGS (5)
  1. CELEBREX [Suspect]
     Dosage: 1 DF, 1X/DAY
     Route: 048
     Dates: start: 20091208, end: 20091210
  2. NOVATREX [Suspect]
     Dosage: 4 DF, WEEKLY
     Route: 048
  3. HUMIRA [Suspect]
     Indication: MUSCULOSKELETAL PAIN
     Dosage: 1 DF, EVERY 2 WEEKS
     Route: 058
     Dates: start: 20090201
  4. SPECIAFOLDINE [Concomitant]
     Dosage: UNK
  5. FLECTOR [Concomitant]
     Dosage: UNK

REACTIONS (4)
  - POST-TRAUMATIC PAIN [None]
  - SHOCK [None]
  - SUPERINFECTION [None]
  - TRAUMATIC HAEMATOMA [None]
